FAERS Safety Report 5306458-8 (Version None)
Quarter: 2007Q2

REPORT INFORMATION
  Report Type: 
  Country: None (occurrence: None)
  Receive Date: 20070417
  Receipt Date: 20070413
  Transmission Date: 20071010
  Serious: Yes (Hospitalization, Disabling)
  Sender: FDA-Public Use
  Company Number: PHBS2007JP05061

PATIENT
  Age: 75 Year
  Sex: Female

DRUGS (5)
  1. RESCULA [Suspect]
     Indication: OPEN ANGLE GLAUCOMA
     Dosage: 4 DROPS TOPICAL OPHTHALMIC INSTILLATION
     Route: 047
     Dates: start: 19980101
  2. SANPILO (PILOCARPINE HYDROCHLORIDE) [Suspect]
     Dosage: 8 DROPS TOPICAL OPHTHALMIC INSTILLATION
     Route: 047
  3. PIVALEPHRINE (DIPIVEFRIN HYDROCHLORIDE) [Suspect]
     Dosage: 8 DROPS TOPICAL OPHTHALMIC INSTILLATION
     Route: 047
  4. BETOPTIC OPHTHALMIC SOLUTION (BETAXOLOL HYDROCHLORIDE) [Suspect]
     Indication: OPEN ANGLE GLAUCOMA
     Dosage: 4 DROPS TOPICAL OPHTHALMIC SOLUTION
     Route: 047
     Dates: start: 19980101, end: 20000831
  5. HYALEIN OPHTHALMIC SOLUTION (SODIUM HYALURONATE) [Concomitant]

REACTIONS (4)
  - HYPOPYON [None]
  - PEMPHIGOID [None]
  - SYMBLEPHARON [None]
  - ULCERATIVE KERATITIS [None]
